FAERS Safety Report 4664689-4 (Version None)
Quarter: 2005Q2

REPORT INFORMATION
  Report Type: 
  Country: None (occurrence: None)
  Receive Date: 20050518
  Receipt Date: 20050511
  Transmission Date: 20051028
  Serious: Yes (Hospitalization)
  Sender: FDA-Public Use
  Company Number: US-BRISTOL-MYERS SQUIBB COMPANY-12965323

PATIENT
  Age: 59 Year
  Sex: Female

DRUGS (3)
  1. CETUXIMAB [Suspect]
     Indication: LUNG CANCER METASTATIC
     Dosage: 3RD INFUSION
     Route: 042
     Dates: start: 20050505, end: 20050505
  2. GEMCITABINE [Suspect]
     Indication: LUNG CANCER METASTATIC
  3. PLATINUM [Suspect]
     Indication: LUNG CANCER METASTATIC

REACTIONS (5)
  - INFUSION RELATED REACTION [None]
  - MUSCLE TWITCHING [None]
  - RASH ERYTHEMATOUS [None]
  - RASH PRURITIC [None]
  - TACHYPNOEA [None]
